FAERS Safety Report 8608750-8 (Version None)
Quarter: 2012Q3

REPORT INFORMATION
  Report Type: 
  Country: None (occurrence: None)
  Receive Date: 20120821
  Receipt Date: 20120806
  Transmission Date: 20120928
  Serious: Yes (Hospitalization)
  Sender: FDA-Public Use
  Company Number: CA-WATSON-2012-14289

PATIENT
  Age: 70 Year
  Sex: Female

DRUGS (1)
  1. NIFEDIPINE [Suspect]
     Indication: HYPERTENSION
     Dosage: UNK
     Route: 065

REACTIONS (2)
  - INTESTINAL STENOSIS [None]
  - BEZOAR [None]
